FAERS Safety Report 24608196 (Version 1)
Quarter: 2024Q4

REPORT INFORMATION
  Report Type: Spontaneous
  Country: US (occurrence: US)
  Receive Date: 20241112
  Receipt Date: 20241112
  Transmission Date: 20250114
  Serious: No
  Sender: ADVANZ PHARMA
  Company Number: US-ADVANZ PHARMA-202410008905

PATIENT

DRUGS (1)
  1. TRANYLCYPROMINE SULFATE [Suspect]
     Active Substance: TRANYLCYPROMINE SULFATE
     Indication: Depression
     Dosage: UNK UNK, BID (3 TABLETS IN THE MORNING, 2 IN THE AFTERNOON) (FILM COATED TABLET)
     Route: 065

REACTIONS (1)
  - Product residue present [Unknown]
